FAERS Safety Report 19794152 (Version 1)
Quarter: 2021Q3

REPORT INFORMATION
  Report Type: Spontaneous
  Country: IL (occurrence: IL)
  Receive Date: 20210907
  Receipt Date: 20210907
  Transmission Date: 20211014
  Serious: Yes (Other)
  Sender: FDA-Public Use
  Company Number: IL-SUN PHARMACEUTICAL INDUSTRIES LTD-2021R1-310141

PATIENT
  Age: 19 Year
  Sex: Female

DRUGS (2)
  1. RIFAMPICIN [Suspect]
     Active Substance: RIFAMPIN
     Indication: BARTONELLA TEST POSITIVE
     Dosage: 300 MILLIGRAM, BID
     Route: 065
  2. DOXYCYCLINE. [Suspect]
     Active Substance: DOXYCYCLINE
     Indication: BARTONELLA TEST POSITIVE
     Dosage: 100 MILLIGRAM, BID
     Route: 065

REACTIONS (1)
  - Visual field defect [Recovering/Resolving]
